FAERS Safety Report 6990173-9 (Version None)
Quarter: 2010Q3

REPORT INFORMATION
  Report Type: 
  Country: None (occurrence: None)
  Receive Date: 20100916
  Receipt Date: 20100420
  Transmission Date: 20110219
  Serious: Yes (Other)
  Sender: FDA-Public Use
  Company Number: US-PFIZER INC-2010050133

PATIENT
  Sex: Female
  Weight: 52.608 kg

DRUGS (10)
  1. LYRICA [Suspect]
     Indication: FIBROMYALGIA
     Dosage: 50 MG, 1X/DAY
     Route: 048
     Dates: start: 20100420, end: 20100420
  2. ZYRTEC [Concomitant]
     Indication: URTICARIA
     Dosage: 10 MG, 1X/DAY
     Route: 048
  3. HYDROXYCHLOROQUINE [Concomitant]
     Indication: JUVENILE ARTHRITIS
     Dosage: 200 MG, 2X/DAY
     Route: 048
     Dates: start: 20090201
  4. ETANERCEPT [Concomitant]
     Indication: JUVENILE ARTHRITIS
     Dosage: 50 MG, UNK
     Route: 058
     Dates: start: 20090201
  5. SULFASALAZINE [Concomitant]
     Indication: JUVENILE ARTHRITIS
     Dosage: UNK MG, 1X/DAY
     Route: 048
     Dates: start: 20090201
  6. TRAMADOL [Concomitant]
     Indication: ANALGESIC THERAPY
     Dosage: 50 MG, UNK
     Route: 048
  7. PREDNISOLONE [Concomitant]
     Indication: JUVENILE ARTHRITIS
     Dosage: 5 MG, 1X/DAY
     Route: 048
     Dates: start: 20090201
  8. FOLIC ACID [Concomitant]
     Dosage: UNK
     Route: 048
  9. MULTI-VITAMINS [Concomitant]
     Dosage: UNK
     Route: 048
  10. VICODIN [Concomitant]
     Indication: ANALGESIC THERAPY
     Dosage: 500 MG, 1X/DAY
     Route: 048

REACTIONS (1)
  - AFFECT LABILITY [None]
